FAERS Safety Report 16103114 (Version 3)
Quarter: 2021Q3

REPORT INFORMATION
  Report Type: Spontaneous
  Country: ES (occurrence: ES)
  Receive Date: 20190322
  Receipt Date: 20210924
  Transmission Date: 20211014
  Serious: Yes (Life-Threatening, Hospitalization, Other)
  Sender: FDA-Public Use
  Company Number: ES-AUROBINDO-AUR-APL-2017-27735

PATIENT
  Age: 32 Year
  Sex: Male

DRUGS (11)
  1. IBUPROFEN. [Suspect]
     Active Substance: IBUPROFEN
     Indication: POSTOPERATIVE CARE
     Dosage: UNKNOWN
     Route: 048
  2. HYPERICUM PERFORATUM [Suspect]
     Active Substance: HYPERICUM PERFORATUM WHOLE
     Indication: POSTOPERATIVE CARE
     Dosage: UNK
     Route: 048
  3. METAMIZOL [Suspect]
     Active Substance: METAMIZOLE SODIUM
     Indication: POST PROCEDURAL DISCHARGE
     Dosage: UNK
     Route: 048
     Dates: start: 2012
  4. PARACETAMOL [Suspect]
     Active Substance: ACETAMINOPHEN
     Indication: POSTOPERATIVE CARE
     Dosage: UNKNOWN
     Route: 048
  5. DIMETHICONE. [Suspect]
     Active Substance: DIMETHICONE
     Indication: POST PROCEDURAL DISCHARGE
  6. PLANTAGO OVATA [Suspect]
     Active Substance: HERBALS\PLANTAGO OVATA LEAF
     Indication: POSTOPERATIVE CARE
     Dosage: UNK
     Route: 048
  7. DIMETHICONE. [Suspect]
     Active Substance: DIMETHICONE
     Indication: POSTOPERATIVE CARE
     Dosage: UNK
     Route: 048
     Dates: start: 2012
  8. PASSIFLORA INCARNATA [Suspect]
     Active Substance: HERBALS\HOMEOPATHICS\PASSIFLORA INCARNATA FLOWERING TOP
     Indication: POSTOPERATIVE CARE
     Dosage: UNK
     Route: 048
  9. DIPYRONE [Suspect]
     Active Substance: DIPYRONE
     Indication: POSTOPERATIVE CARE
     Dosage: 650 MILLIGRAM
     Route: 048
  10. OXAZEPAM. [Suspect]
     Active Substance: OXAZEPAM
     Indication: POSTOPERATIVE CARE
     Dosage: UNK
     Route: 048
     Dates: start: 2012
  11. METOCLOPRAMIDE. [Suspect]
     Active Substance: METOCLOPRAMIDE
     Indication: POSTOPERATIVE CARE
     Dosage: UNK
     Route: 048
     Dates: start: 2012

REACTIONS (17)
  - Pericardial effusion [Recovered/Resolved]
  - Abdominal pain [Recovered/Resolved]
  - Arthralgia [Recovered/Resolved]
  - Hepatic failure [Recovered/Resolved]
  - Jaundice [Recovered/Resolved]
  - Hypoproteinaemia [Recovered/Resolved]
  - Oedema peripheral [Recovered/Resolved]
  - Oedema [Recovered/Resolved]
  - Renal failure [Recovered/Resolved]
  - Hepatomegaly [Recovered/Resolved]
  - Drug reaction with eosinophilia and systemic symptoms [Recovered/Resolved]
  - Pleural effusion [Recovered/Resolved]
  - Pyrexia [Recovered/Resolved]
  - Diarrhoea [Recovered/Resolved]
  - Ascites [Recovered/Resolved]
  - Myalgia [Recovered/Resolved]
  - Leukocytosis [Recovered/Resolved]

NARRATIVE: CASE EVENT DATE: 2012
